FAERS Safety Report 12892840 (Version 1)
Quarter: 2016Q4

REPORT INFORMATION
  Report Type: Spontaneous
  Country: PT (occurrence: PT)
  Receive Date: 20161028
  Receipt Date: 20161028
  Transmission Date: 20170207
  Serious: Yes (Death, Hospitalization, Other)
  Sender: FDA-Public Use
  Company Number: PT-ROCHE-1805400

PATIENT
  Sex: Male

DRUGS (6)
  1. FILGRASTIM [Interacting]
     Active Substance: FILGRASTIM
     Indication: PANCYTOPENIA
     Route: 065
  2. DARBEPOETIN ALFA [Interacting]
     Active Substance: DARBEPOETIN ALFA
     Indication: PRODUCT USED FOR UNKNOWN INDICATION
     Route: 065
  3. URSODEOXYCHOLIC ACID [Interacting]
     Active Substance: URSODIOL
     Indication: PRODUCT USED FOR UNKNOWN INDICATION
     Route: 065
  4. CIPROFLOXACIN. [Interacting]
     Active Substance: CIPROFLOXACIN
     Indication: URINARY TRACT INFECTION
     Route: 065
     Dates: start: 20160712
  5. ESBRIET [Suspect]
     Active Substance: PIRFENIDONE
     Indication: IDIOPATHIC PULMONARY FIBROSIS
     Dosage: 2 TABLETS 3 X DAY
     Route: 048
     Dates: start: 20160614
  6. ESBRIET [Interacting]
     Active Substance: PIRFENIDONE
     Route: 048
     Dates: start: 20160725, end: 201607

REACTIONS (12)
  - Rash [Unknown]
  - Drug interaction [Unknown]
  - Oxygen saturation decreased [Unknown]
  - Erythema [Recovered/Resolved]
  - Product size issue [Unknown]
  - Skin exfoliation [Recovered/Resolved]
  - Face oedema [Recovered/Resolved]
  - Skin oedema [Recovered/Resolved]
  - Respiratory failure [Fatal]
  - Pyrexia [Recovered/Resolved]
  - Off label use [Unknown]
  - Erythema [Recovered/Resolved]

NARRATIVE: CASE EVENT DATE: 201607
